FAERS Safety Report 7916726-9 (Version None)
Quarter: 2011Q4

REPORT INFORMATION
  Report Type: 
  Country: None (occurrence: None)
  Receive Date: 20111114
  Receipt Date: 20111024
  Transmission Date: 20120403
  Serious: Yes (Hospitalization)
  Sender: FDA-Public Use
  Company Number: DSA_48106_2011

PATIENT
  Age: 84 Year
  Sex: Male

DRUGS (1)
  1. BUPROPION HYDROCHLORIDE [Suspect]
     Indication: PRODUCT USED FOR UNKNOWN INDICATION
     Dosage: (150 MG BID) ; (75 MG ORAL)
     Route: 048

REACTIONS (10)
  - MUSCULAR WEAKNESS [None]
  - DYSARTHRIA [None]
  - AGITATION [None]
  - TREMOR [None]
  - MYOCLONUS [None]
  - DELIRIUM [None]
  - MOTOR DYSFUNCTION [None]
  - ATAXIA [None]
  - HALLUCINATION, VISUAL [None]
  - VERTIGO [None]
